FAERS Safety Report 7117369-X (Version None)
Quarter: 2010Q4

REPORT INFORMATION
  Report Type: 
  Country: None (occurrence: None)
  Receive Date: 20101122
  Receipt Date: 20101117
  Transmission Date: 20110411
  Serious: Yes (Life-Threatening, Other)
  Sender: FDA-Public Use
  Company Number: JP-SANOFI-AVENTIS-2010SA069822

PATIENT
  Age: 81 Year
  Sex: Female
  Weight: 41.4 kg

DRUGS (14)
  1. PLAVIX [Suspect]
     Route: 048
     Dates: start: 20100419, end: 20100419
  2. PLAVIX [Suspect]
     Route: 048
     Dates: start: 20100420, end: 20100523
  3. ASPIRIN [Concomitant]
     Route: 048
     Dates: start: 20100419
  4. HEPARIN SODIUM [Concomitant]
     Dosage: DOSE:15000 UNIT(S)
     Route: 042
     Dates: start: 20100419, end: 20100421
  5. PREDNISOLONE [Concomitant]
     Route: 048
  6. LASIX [Concomitant]
     Route: 048
  7. SLOW-K [Concomitant]
     Route: 048
  8. ALENDRONATE SODIUM [Concomitant]
     Route: 048
     Dates: start: 20100420, end: 20100515
  9. AMBROXOL [Concomitant]
     Route: 048
  10. CODEINE PHOSPHATE [Concomitant]
     Route: 048
  11. RANITIDINE HYDROCHLORIDE [Concomitant]
     Route: 048
     Dates: start: 20100419
  12. RENIVEZE [Concomitant]
     Route: 048
     Dates: start: 20100419
  13. ITAVASTATIN [Concomitant]
     Route: 048
     Dates: start: 20100419
  14. LOXOPROFEN SODIUM [Concomitant]
     Route: 048

REACTIONS (3)
  - IRON DEFICIENCY ANAEMIA [None]
  - PERIPHERAL ARTERIAL OCCLUSIVE DISEASE [None]
  - PULMONARY EMBOLISM [None]
